FAERS Safety Report 9799912 (Version 2)
Quarter: 2014Q2

REPORT INFORMATION
  Report Type: Spontaneous
  Country: US (occurrence: US)
  Receive Date: 20140106
  Receipt Date: 20140418
  Transmission Date: 20141212
  Serious: Yes (Hospitalization)
  Sender: FDA-Public Use
  Company Number: US-B.I. PHARMACEUTICALS,INC./RIDGEFIELD-2013-BI-43887BP

PATIENT
  Sex: Female
  Weight: 66.22 kg

DRUGS (9)
  1. PRADAXA [Suspect]
     Indication: ANTICOAGULANT THERAPY
     Dosage: 300 MG
     Route: 065
     Dates: start: 20120417, end: 20120907
  2. PRADAXA [Suspect]
     Indication: ATRIAL FIBRILLATION
  3. PRADAXA [Suspect]
     Indication: ATRIAL FLUTTER
  4. METOPROLOL [Concomitant]
     Dosage: 200 MG
     Route: 048
  5. ENALAPRIL [Concomitant]
     Dosage: 40 MG
     Route: 048
  6. CHLORTHALIDONE [Concomitant]
     Dosage: 50 MG
     Route: 048
  7. ROPINIROLE [Concomitant]
     Dosage: 1 MG
     Route: 048
  8. LUTEIN [Concomitant]
     Dosage: 20 MG
     Route: 048
  9. CALCIUM PLUS VITAMIN D [Concomitant]
     Dosage: 1000 U
     Route: 048

REACTIONS (4)
  - Gastrointestinal haemorrhage [Recovered/Resolved]
  - Coagulopathy [Not Recovered/Not Resolved]
  - Anaemia [Unknown]
  - Ulcer haemorrhage [Unknown]
